FAERS Safety Report 5854994-8 (Version None)
Quarter: 2008Q3

REPORT INFORMATION
  Report Type: 
  Country: None (occurrence: None)
  Receive Date: 20080822
  Receipt Date: 20080505
  Transmission Date: 20090109
  Serious: No
  Sender: FDA-Public Use
  Company Number: US-ABBOTT-08P-163-0450464-00

PATIENT
  Sex: Male
  Weight: 104.42 kg

DRUGS (8)
  1. SYNTHROID [Suspect]
     Indication: HYPOTHYROIDISM
     Route: 048
     Dates: start: 20080501
  2. ONEPRAZOLE [Concomitant]
     Indication: STOMACH DISCOMFORT
     Route: 048
     Dates: start: 19980101
  3. LORAZEPAM [Concomitant]
     Indication: ANXIETY
     Route: 048
     Dates: start: 19700101
  4. ATENOLOL [Concomitant]
     Indication: HYPERTENSION
     Route: 048
     Dates: start: 19970101
  5. BENACAR ACP [Concomitant]
     Indication: HYPERTENSION
     Route: 048
     Dates: start: 20080101
  6. IBUPROFEN [Concomitant]
     Indication: FIBROMYALGIA
     Route: 048
     Dates: start: 19930101
  7. GLIBENCLAMIDE [Concomitant]
     Indication: DIABETES MELLITUS
     Route: 048
     Dates: start: 20000101
  8. METFORMIN ACL [Concomitant]
     Indication: DIABETES MELLITUS
     Route: 048
     Dates: start: 20050101

REACTIONS (4)
  - CONFUSIONAL STATE [None]
  - HYPOAESTHESIA [None]
  - LETHARGY [None]
  - PAIN [None]
